FAERS Safety Report 11385677 (Version 2)
Quarter: 2015Q4

REPORT INFORMATION
  Report Type: Report from Study
  Country: US (occurrence: US)
  Receive Date: 20150817
  Receipt Date: 20151022
  Transmission Date: 20160304
  Serious: No
  Sender: FDA-Public Use
  Company Number: US-AMGEN-USASL2015082331

PATIENT
  Age: 67 Year
  Sex: Female

DRUGS (1)
  1. ENBREL [Suspect]
     Active Substance: ETANERCEPT
     Indication: RHEUMATOID ARTHRITIS
     Dosage: UNK UNK, UNK
     Route: 065
     Dates: start: 20100101

REACTIONS (9)
  - Inappropriate schedule of drug administration [Unknown]
  - Drug dose omission [Unknown]
  - Dry eye [Unknown]
  - Vision blurred [Unknown]
  - Fall [Unknown]
  - Nasopharyngitis [Unknown]
  - Neck pain [Unknown]
  - Wrist fracture [Unknown]
  - Upper respiratory tract infection [Unknown]

NARRATIVE: CASE EVENT DATE: 20100101
